FAERS Safety Report 13701711 (Version 1)
Quarter: 2017Q2

REPORT INFORMATION
  Report Type: Spontaneous
  Country: GB (occurrence: GB)
  Receive Date: 20170629
  Receipt Date: 20170629
  Transmission Date: 20170830
  Serious: Yes (Hospitalization, Disabling, Other)
  Sender: FDA-Public Use
  Company Number: GB-ASTRAZENECA-2017SE67160

PATIENT
  Age: 76 Year
  Sex: Male

DRUGS (1)
  1. GOSERELIN [Suspect]
     Active Substance: GOSERELIN
     Indication: PROSTATE CANCER
     Route: 058

REACTIONS (1)
  - Photosensitivity reaction [Recovering/Resolving]
